FAERS Safety Report 5164867-4 (Version None)
Quarter: 2006Q4

REPORT INFORMATION
  Report Type: 
  Country: None (occurrence: None)
  Receive Date: 20061205
  Receipt Date: 20061128
  Transmission Date: 20070319
  Serious: Yes (Other)
  Sender: FDA-Public Use
  Company Number: JP-GILEAD-2006-0010743

PATIENT
  Sex: Male

DRUGS (6)
  1. TRUVADA [Suspect]
     Indication: HIV INFECTION
     Route: 048
     Dates: start: 20060309
  2. STOCRIN [Suspect]
     Indication: HIV INFECTION
     Route: 048
     Dates: start: 20060309
  3. NORVASC [Suspect]
     Indication: HYPERTENSION
     Route: 048
     Dates: start: 20060112
  4. CLARITHROMYCIN [Concomitant]
     Dates: start: 20051007
  5. ITRIZOLE [Concomitant]
     Dates: start: 20051007
  6. OLMETEC [Concomitant]
     Dates: start: 20060112

REACTIONS (1)
  - GAMMA-GLUTAMYLTRANSFERASE INCREASED [None]
